FAERS Safety Report 15742883 (Version 1)
Quarter: 2018Q4

REPORT INFORMATION
  Report Type: Report from Study
  Country: JP (occurrence: JP)
  Receive Date: 20181219
  Receipt Date: 20181219
  Transmission Date: 20190205
  Serious: Yes (Other)
  Sender: FDA-Public Use
  Company Number: JP-CONCORDIA PHARMACEUTICALS INC.-GSH201812-004153

PATIENT
  Age: 76 Year
  Sex: Female
  Weight: 32 kg

DRUGS (11)
  1. NEXIUM [Concomitant]
     Active Substance: ESOMEPRAZOLE MAGNESIUM
     Indication: SYSTEMIC LUPUS ERYTHEMATOSUS
  2. BONALON [Concomitant]
     Active Substance: ALENDRONATE SODIUM
     Route: 048
  3. TRAMCET [Concomitant]
     Active Substance: ACETAMINOPHEN\TRAMADOL
     Indication: PRODUCT USED FOR UNKNOWN INDICATION
     Dates: start: 20171023, end: 20180129
  4. DICLOFENAC SODIUM. [Concomitant]
     Active Substance: DICLOFENAC SODIUM
     Indication: PRODUCT USED FOR UNKNOWN INDICATION
     Dates: start: 20171015, end: 20171022
  5. FERROUS SODIUM CITRATE [Concomitant]
     Active Substance: SODIUM FERROUS CITRATE
     Indication: SYSTEMIC LUPUS ERYTHEMATOSUS
     Dates: end: 20171106
  6. PLAQUENIL [Suspect]
     Active Substance: HYDROXYCHLOROQUINE SULFATE
     Indication: SYSTEMIC LUPUS ERYTHEMATOSUS
     Dosage: ADMINISTERED EVERY DAY
     Route: 048
     Dates: start: 20170919
  7. RIMATIL [Concomitant]
     Active Substance: BUCILLAMINE
     Indication: SYSTEMIC LUPUS ERYTHEMATOSUS
     Dates: end: 20171023
  8. FEBURIC [Concomitant]
     Active Substance: FEBUXOSTAT
     Indication: SYSTEMIC LUPUS ERYTHEMATOSUS
  9. PRIMPERAN [Concomitant]
     Active Substance: METOCLOPRAMIDE HYDROCHLORIDE
     Indication: PRODUCT USED FOR UNKNOWN INDICATION
     Dates: start: 20171023, end: 20171028
  10. LOXONIN [Concomitant]
     Active Substance: LOXOPROFEN SODIUM
     Indication: PRODUCT USED FOR UNKNOWN INDICATION
     Dates: start: 20171015, end: 20180321
  11. CALONAL [Concomitant]
     Active Substance: ACETAMINOPHEN
     Indication: PRODUCT USED FOR UNKNOWN INDICATION
     Dates: start: 20171106, end: 20180314

REACTIONS (4)
  - External ear disorder [Recovered/Resolved]
  - Cellulitis [Recovered/Resolved]
  - Chondrocalcinosis pyrophosphate [Recovered/Resolved]
  - Constipation [Not Recovered/Not Resolved]

NARRATIVE: CASE EVENT DATE: 2017
